FAERS Safety Report 7296722-8 (Version None)
Quarter: 2011Q1

REPORT INFORMATION
  Report Type: 
  Country: None (occurrence: None)
  Receive Date: 20110216
  Receipt Date: 20110207
  Transmission Date: 20110831
  Serious: Yes (Hospitalization, Other)
  Sender: FDA-Public Use
  Company Number: US-ASTRAZENECA-2009SE27617

PATIENT
  Age: 23827 Day
  Sex: Female
  Weight: 57.7 kg

DRUGS (13)
  1. CRESTOR [Suspect]
     Route: 048
     Dates: start: 20091001
  2. CRESTOR [Suspect]
     Route: 048
     Dates: start: 20071001
  3. CRESTOR [Suspect]
     Route: 048
  4. ALBUTEROL [Concomitant]
     Indication: ASTHMA
  5. NASONEX [Concomitant]
     Indication: MULTIPLE ALLERGIES
  6. NASONEX [Concomitant]
     Indication: ASTHMA
  7. AZMACORT [Concomitant]
     Indication: ASTHMA
  8. TOPROL-XL [Suspect]
     Indication: HYPERTENSION
     Dosage: 100 MG
     Route: 048
  9. VALIUM [Concomitant]
     Indication: ANXIETY
     Dosage: AS REQUIRED
  10. TOPROL-XL [Suspect]
     Route: 048
  11. CRESTOR [Suspect]
     Dosage: ONE TABLET IN MORNING AND ONE AT NIGHT
     Route: 048
  12. LANTUS [Concomitant]
     Indication: DIABETES MELLITUS
     Route: 065
  13. HUMALOG [Concomitant]
     Indication: DIABETES MELLITUS
     Route: 065

REACTIONS (14)
  - ARTERIAL THROMBOSIS [None]
  - HYPOGLYCAEMIC COMA [None]
  - PHOTOPSIA [None]
  - HEADACHE [None]
  - OVERDOSE [None]
  - CONVULSION [None]
  - BLINDNESS TRANSIENT [None]
  - DEPRESSED MOOD [None]
  - CHEST PAIN [None]
  - NAUSEA [None]
  - AMNESIA [None]
  - INCORRECT DOSE ADMINISTERED [None]
  - DYSPNOEA [None]
  - ASTHENIA [None]
